FAERS Safety Report 6530742-3 (Version None)
Quarter: 2010Q1

REPORT INFORMATION
  Report Type: 
  Country: None (occurrence: None)
  Receive Date: 20100108
  Receipt Date: 20090109
  Transmission Date: 20100710
  Serious: No
  Sender: FDA-Public Use
  Company Number: A0763028A

PATIENT
  Age: 75 Year
  Sex: Male

DRUGS (9)
  1. LOVAZA [Suspect]
     Indication: PROPHYLAXIS
     Dosage: 1G THREE TIMES PER DAY
     Route: 048
     Dates: start: 20060701
  2. METFORMIN HYDROCHLORIDE [Concomitant]
  3. ZOCOR [Concomitant]
  4. FLECAINIDE ACETATE [Concomitant]
  5. SYNTHROID [Concomitant]
  6. HYZAAR [Concomitant]
  7. GLYBURIDE [Concomitant]
  8. COUMADIN [Concomitant]
  9. ASPIRIN [Concomitant]

REACTIONS (2)
  - BLOOD TRIGLYCERIDES INCREASED [None]
  - ERUCTATION [None]
